FAERS Safety Report 6713393-7 (Version None)
Quarter: 2010Q2

REPORT INFORMATION
  Report Type: 
  Country: None (occurrence: None)
  Receive Date: 20100506
  Receipt Date: 20100429
  Transmission Date: 20101027
  Serious: Yes (Hospitalization)
  Sender: FDA-Public Use
  Company Number: DE-ROCHE-700768

PATIENT
  Sex: Female
  Weight: 72 kg

DRUGS (4)
  1. BEVACIZUMAB [Suspect]
     Indication: BREAST CANCER
     Dosage: FORM: VIAL; LAST DOSE PRIOR TO SAE:19 APRIL 2010. DOSE LEVEL: 15MG/KG
     Route: 042
     Dates: start: 20100308
  2. TRASTUZUMAB [Suspect]
     Indication: BREAST CANCER
     Dosage: FORM: VIAL; LAST DOSE PRIOR TO SAE:19 APRIL 2010. DOSE LEVEL: 6 MG/KG
     Route: 042
     Dates: start: 20100308
  3. CARBOPLATIN [Suspect]
     Indication: BREAST CANCER
     Dosage: FORM: VIAL; LAST DOSE PRIOR TO SAE:19 APRIL 2010. DOSE LEVEL: 6 AUC.
     Route: 042
     Dates: start: 20100308
  4. DOCETAXEL [Suspect]
     Indication: BREAST CANCER
     Dosage: FORM: VIAL; LAST DOSE PRIOR TO SAE:19 APRIL 2010. DOSE LEVEL: 75 MG/M2
     Route: 042
     Dates: start: 20100308

REACTIONS (1)
  - FAECALOMA [None]
